FAERS Safety Report 8068206-0 (Version None)
Quarter: 2012Q1

REPORT INFORMATION
  Report Type: 
  Country: None (occurrence: None)
  Receive Date: 20120124
  Receipt Date: 20110929
  Transmission Date: 20120608
  Serious: No
  Sender: FDA-Public Use
  Company Number: US-AMGEN-USASP2011050452

PATIENT
  Age: 65 Year
  Sex: Female

DRUGS (9)
  1. ONE A DAY                          /02262701/ [Concomitant]
  2. CALCIUM [Concomitant]
  3. NEURONTIN [Concomitant]
     Dosage: UNK
  4. ATIVAN [Concomitant]
     Dosage: UNK
  5. MELOXICAM [Concomitant]
  6. PROLIA [Suspect]
     Indication: OSTEOPENIA
     Dosage: 60 MG, Q6MO
     Dates: start: 20110403, end: 20110101
  7. OMEPRAZOLE [Concomitant]
     Dosage: 40 MG, QD
  8. MAGNESIUM SULFATE [Concomitant]
  9. VITAMIN D [Concomitant]

REACTIONS (9)
  - FEELING ABNORMAL [None]
  - DIZZINESS [None]
  - DEPRESSION [None]
  - CYSTITIS [None]
  - ASTHENIA [None]
  - PALPITATIONS [None]
  - ABDOMINAL DISCOMFORT [None]
  - PRURITUS GENERALISED [None]
  - DYSPEPSIA [None]
